FAERS Safety Report 9434364 (Version 1)
Quarter: 2013Q3

REPORT INFORMATION
  Report Type: Report from Study
  Country: CA (occurrence: CA)
  Receive Date: 20130801
  Receipt Date: 20130801
  Transmission Date: 20140515
  Serious: Yes (Other)
  Sender: FDA-Public Use
  Company Number: CA-JNJFOC-20130600689

PATIENT
  Age: 51 Year
  Sex: Female
  Weight: 52.2 kg

DRUGS (9)
  1. REMICADE [Suspect]
     Indication: COLITIS ULCERATIVE
     Route: 042
  2. REMICADE [Suspect]
     Indication: COLITIS ULCERATIVE
     Route: 042
     Dates: start: 20120613, end: 2012
  3. REMICADE [Suspect]
     Indication: COLITIS ULCERATIVE
     Route: 042
     Dates: start: 2010
  4. MEZAVANT [Concomitant]
     Indication: COLITIS
     Dosage: FOR PAST 2 YEARS
     Route: 065
  5. PURINETHOL [Concomitant]
     Dosage: FOR PAST 3-4 YEARS
     Route: 065
  6. COUMADIN [Concomitant]
     Indication: MITRAL VALVE REPLACEMENT
     Dosage: 2ND DAY
     Route: 065
  7. COUMADIN [Concomitant]
     Indication: MITRAL VALVE REPLACEMENT
     Dosage: FIRST DAY
     Route: 065
  8. COUMADIN [Concomitant]
     Indication: MITRAL VALVE REPLACEMENT
     Dosage: 3RD DAY
     Route: 065
  9. BABY ASPIRIN [Concomitant]
     Indication: MITRAL VALVE REPLACEMENT
     Dosage: FROM PAST 30 YEARS
     Route: 065

REACTIONS (3)
  - Inflammation [Unknown]
  - Diarrhoea [Unknown]
  - Headache [Unknown]
